FAERS Safety Report 16754389 (Version 1)
Quarter: 2019Q3

REPORT INFORMATION
  Report Type: Spontaneous
  Country: US (occurrence: US)
  Receive Date: 20190710
  Receipt Date: 20190710
  Transmission Date: 20191005
  Serious: No
  Sender: FDA-Public Use
  Company Number: None

PATIENT
  Age: 48 Year
  Sex: Female

DRUGS (3)
  1. ADVIL [Concomitant]
     Active Substance: IBUPROFEN
  2. LASIX [Concomitant]
     Active Substance: FUROSEMIDE
  3. AMIKACIN SULFATE 1GM/4ML FRESENIUS KABI USA [Suspect]
     Active Substance: AMIKACIN SULFATE
     Indication: ABDOMINAL WALL INFECTION
     Dosage: ?          OTHER FREQUENCY:EVERY 24 HOURS;?
     Route: 042
     Dates: start: 20190610

REACTIONS (4)
  - Feeling hot [None]
  - Hyperhidrosis [None]
  - Laboratory test abnormal [None]
  - Pain [None]

NARRATIVE: CASE EVENT DATE: 20190701
